FAERS Safety Report 18854270 (Version 3)
Quarter: 2022Q2

REPORT INFORMATION
  Report Type: Spontaneous
  Country: US (occurrence: US)
  Receive Date: 20210205
  Receipt Date: 20220502
  Transmission Date: 20220720
  Serious: Yes (Other)
  Sender: FDA-Public Use
  Company Number: US-BAYER-2021-044220

PATIENT
  Age: 59 Year
  Sex: Male

DRUGS (1)
  1. ALEVE [Suspect]
     Active Substance: NAPROXEN SODIUM
     Dosage: 1 DF, QD
     Route: 048
     Dates: start: 20130720, end: 20130725

REACTIONS (3)
  - Internal haemorrhage [Recovered/Resolved]
  - Gastric infection [None]
  - Helicobacter infection [Unknown]

NARRATIVE: CASE EVENT DATE: 20130701
